FAERS Safety Report 13765497 (Version 2)
Quarter: 2017Q3

REPORT INFORMATION
  Report Type: Report from Study
  Country: US (occurrence: US)
  Receive Date: 20170718
  Receipt Date: 20170829
  Transmission Date: 20171127
  Serious: Yes (Other)
  Sender: FDA-Public Use
  Company Number: US-JAZZ-2017-US-009094

PATIENT
  Sex: Female

DRUGS (4)
  1. XYREM [Suspect]
     Active Substance: SODIUM OXYBATE
     Indication: CATAPLEXY
     Dosage: 2.5 G, QD, SECOND DOSE
     Route: 048
     Dates: start: 201704, end: 2017
  2. CLONAZEPAM. [Suspect]
     Active Substance: CLONAZEPAM
     Indication: ANXIETY
  3. CLONAZEPAM. [Suspect]
     Active Substance: CLONAZEPAM
     Indication: STRESS
  4. XYREM [Suspect]
     Active Substance: SODIUM OXYBATE
     Indication: NARCOLEPSY
     Dosage: 2 G, QD, FIRST DOSE
     Route: 048
     Dates: start: 201704, end: 2017

REACTIONS (4)
  - Anxiety [Unknown]
  - Intraductal proliferative breast lesion [Not Recovered/Not Resolved]
  - Stress [Unknown]
  - Feeling drunk [Unknown]
